FAERS Safety Report 6371757-8 (Version None)
Quarter: 2009Q3

REPORT INFORMATION
  Report Type: 
  Country: None (occurrence: None)
  Receive Date: 20090923
  Receipt Date: 20090914
  Transmission Date: 20100115
  Serious: Yes (Hospitalization)
  Sender: FDA-Public Use
  Company Number: GB-ASTRAZENECA-2009SE03456

PATIENT
  Sex: Male

DRUGS (8)
  1. SEROQUEL [Suspect]
     Indication: PSYCHOTIC DISORDER
     Route: 048
     Dates: start: 20090101
  2. SEROQUEL [Suspect]
     Route: 048
     Dates: start: 20090101
  3. SEROQUEL [Suspect]
     Route: 048
     Dates: start: 20090101
  4. ATENOLOL [Suspect]
     Indication: HYPERTENSION
     Route: 048
  5. RAMIPRIL [Suspect]
     Indication: HYPERTENSION
     Route: 048
  6. ASPIRIN [Concomitant]
     Route: 048
  7. PAROXETINE HCL [Concomitant]
     Indication: DEPRESSED MOOD
     Route: 048
  8. ACETAMINOPHEN [Concomitant]
     Indication: PAIN
     Dosage: 1-3 G
     Route: 048

REACTIONS (3)
  - HYPOTENSION [None]
  - INCORRECT DOSE ADMINISTERED [None]
  - SYNCOPE [None]
